FAERS Safety Report 5583915-0 (Version None)
Quarter: 2008Q1

REPORT INFORMATION
  Report Type: 
  Country: None (occurrence: None)
  Receive Date: 20080108
  Receipt Date: 20071228
  Transmission Date: 20080703
  Serious: Yes (Hospitalization)
  Sender: FDA-Public Use
  Company Number: US-JNJFOC-20071006626

PATIENT
  Age: 2 Year
  Sex: Female

DRUGS (1)
  1. UNSPECIFIED INFANT COLD AND COUGH FORMULATION [Suspect]
     Indication: DRUG USE FOR UNKNOWN INDICATION
     Dosage: A THERAPEUTIC DOSE

REACTIONS (2)
  - CRYING [None]
  - FORMICATION [None]
